FAERS Safety Report 4522204-X (Version None)
Quarter: 2004Q4

REPORT INFORMATION
  Report Type: 
  Country: None (occurrence: None)
  Receive Date: 20041207
  Receipt Date: 20041118
  Transmission Date: 20050328
  Serious: Yes (Hospitalization)
  Sender: FDA-Public Use
  Company Number: FR_041105237

PATIENT
  Age: 81 Year
  Sex: Female

DRUGS (8)
  1. PROZAC [Suspect]
     Indication: DEPRESSION
     Dosage: 20 MG/1 IN THE MORNING
     Dates: start: 20040802, end: 20040816
  2. LODOZ [Concomitant]
  3. RENITEC(ENALAPRIL) [Concomitant]
  4. ATENOLOL [Concomitant]
  5. ARICEPT [Concomitant]
  6. CLINUTREN DESSERT [Concomitant]
  7. SPASMINE [Concomitant]
  8. DIALGIREX [Concomitant]

REACTIONS (12)
  - BRADYCARDIA [None]
  - CARDIAC MURMUR [None]
  - CARDIOMEGALY [None]
  - DISORIENTATION [None]
  - FALL [None]
  - HALLUCINATION [None]
  - HYPOKALAEMIA [None]
  - HYPONATRAEMIA [None]
  - MALAISE [None]
  - OCULAR ICTERUS [None]
  - ORTHOSTATIC HYPOTENSION [None]
  - VENTRICULAR HYPERTROPHY [None]
